FAERS Safety Report 23241400 (Version 1)
Quarter: 2023Q4

REPORT INFORMATION
  Report Type: Report from Study
  Country: CN (occurrence: CN)
  Receive Date: 20231129
  Receipt Date: 20231129
  Transmission Date: 20240109
  Serious: Yes (Death, Other)
  Sender: FDA-Public Use
  Company Number: CN-SUN PHARMACEUTICAL INDUSTRIES LTD-2023R1-421371

PATIENT
  Age: 48 Month
  Sex: Male

DRUGS (1)
  1. DECITABINE [Suspect]
     Active Substance: DECITABINE
     Indication: Juvenile chronic myelomonocytic leukaemia
     Dosage: 20 MILLIGRAM/SQ. METER (THE INTERVAL FOR EACH TREATMENT WAS 4 WEEKS)
     Route: 065

REACTIONS (8)
  - Neoplasm progression [Fatal]
  - Thrombocytopenia [Unknown]
  - Activated partial thromboplastin time prolonged [Unknown]
  - Sepsis [Unknown]
  - Infection [Unknown]
  - Hyperbilirubinaemia [Unknown]
  - Hyperuricaemia [Unknown]
  - Ileus [Unknown]
